FAERS Safety Report 4971354-2 (Version None)
Quarter: 2006Q2

REPORT INFORMATION
  Report Type: 
  Country: None (occurrence: None)
  Receive Date: 20060413
  Receipt Date: 20060406
  Transmission Date: 20061013
  Serious: Yes (Hospitalization)
  Sender: FDA-Public Use
  Company Number: 2006CG00655

PATIENT
  Age: 69 Year
  Sex: Male

DRUGS (6)
  1. MARCAINE [Suspect]
     Route: 050
     Dates: start: 20050902, end: 20050902
  2. PERFALGAN [Suspect]
     Route: 042
     Dates: start: 20050902, end: 20050902
  3. PROPOFOL [Concomitant]
     Indication: GENERAL ANAESTHESIA
     Route: 042
     Dates: start: 20050902, end: 20050902
  4. HYPNOVEL [Concomitant]
     Indication: GENERAL ANAESTHESIA
     Dates: start: 20050902, end: 20050902
  5. SUFENTANIL CITRATE [Concomitant]
     Indication: GENERAL ANAESTHESIA
     Dates: start: 20050902, end: 20050902
  6. FLAGYL [Concomitant]

REACTIONS (1)
  - BRONCHOSPASM [None]
